FAERS Safety Report 6866301-2 (Version None)
Quarter: 2010Q3

REPORT INFORMATION
  Report Type: 
  Country: None (occurrence: None)
  Receive Date: 20100722
  Receipt Date: 20100615
  Transmission Date: 20110219
  Serious: Yes (Other)
  Sender: FDA-Public Use
  Company Number: FR-ASTRAZENECA-2010SE33424

PATIENT
  Sex: Female

DRUGS (2)
  1. LIDOCAINE [Suspect]
  2. SUFENTANIL [Suspect]
     Dosage: 1 UG/KG/FETAL WEIGHT

REACTIONS (2)
  - ABORTION INDUCED [None]
  - DRUG EXPOSURE DURING PREGNANCY [None]
